FAERS Safety Report 16365107 (Version 3)
Quarter: 2019Q3

REPORT INFORMATION
  Report Type: Report from Study
  Country: DE (occurrence: DE)
  Receive Date: 20190529
  Receipt Date: 20190717
  Transmission Date: 20191004
  Serious: Yes (Other)
  Sender: FDA-Public Use
  Company Number: DE-ALIMERA SCIENCES LIMITED-DE-IL-2019-004398

PATIENT
  Age: 43 Year
  Sex: Female

DRUGS (8)
  1. ILUVIEN [Suspect]
     Active Substance: FLUOCINOLONE ACETONIDE
     Dosage: 0.25 ?G, QD LEFT EYE - REMOVED
     Route: 031
     Dates: start: 20180216, end: 20190507
  2. COSOPT [Concomitant]
     Active Substance: DORZOLAMIDE HYDROCHLORIDE\TIMOLOL MALEATE
     Indication: GLAUCOMA
     Dosage: UNK, BID
     Dates: start: 201904
  3. BRIMONIDIN [Concomitant]
     Indication: GLAUCOMA
     Dosage: UNK, BID
     Dates: start: 201904
  4. ILUVIEN [Suspect]
     Active Substance: FLUOCINOLONE ACETONIDE
     Dosage: 0.25 ?G, QD RIGHT EYE
     Route: 031
     Dates: start: 20190416
  5. ILUVIEN [Suspect]
     Active Substance: FLUOCINOLONE ACETONIDE
     Indication: DIABETIC RETINAL OEDEMA
     Dosage: 0.25 ?G, QD RIGHT EYE
     Route: 031
     Dates: start: 20180116
  6. RAMIPRIL. [Concomitant]
     Active Substance: RAMIPRIL
     Indication: HYPERTENSION
     Dosage: UNK
     Dates: start: 201701
  7. ILUVIEN [Suspect]
     Active Substance: FLUOCINOLONE ACETONIDE
     Dosage: 0.25 ?G, QD LEFT EYE
     Route: 031
     Dates: start: 20190403
  8. HUMALOG [Concomitant]
     Active Substance: INSULIN LISPRO
     Indication: TYPE 1 DIABETES MELLITUS
     Dosage: 20-25 IU DAILY
     Route: 058
     Dates: start: 199601

REACTIONS (3)
  - Medical device removal [Recovered/Resolved]
  - Device dislocation [Recovered/Resolved]
  - Intraocular pressure increased [Recovered/Resolved]

NARRATIVE: CASE EVENT DATE: 20190403
